FAERS Safety Report 8809294 (Version 1)
Quarter: 2012Q4

REPORT INFORMATION
  Report Type: Spontaneous
  Country: US (occurrence: None)
  Receive Date: 20120924
  Receipt Date: 20120924
  Transmission Date: 20130627
  Serious: Yes (Hospitalization)
  Sender: FDA-Public Use
  Company Number: None

PATIENT
  Age: 61 Year
  Sex: Female

DRUGS (1)
  1. GABAPENTIN [Suspect]
     Dosage: 100mg 1qhs po
     Dates: start: 20120921, end: 20120921

REACTIONS (3)
  - Urticaria [None]
  - Swelling face [None]
  - Swollen tongue [None]
